FAERS Safety Report 4697084-2 (Version None)
Quarter: 2005Q2

REPORT INFORMATION
  Report Type: 
  Country: None (occurrence: None)
  Receive Date: 20050622
  Receipt Date: 20050421
  Transmission Date: 20051028
  Serious: Yes (Death, Hospitalization)
  Sender: FDA-Public Use
  Company Number: JP-ROCHE-402654

PATIENT
  Age: 81 Year
  Sex: Male

DRUGS (5)
  1. ROCEPHIN [Suspect]
     Indication: PYREXIA
     Route: 041
     Dates: start: 20050419, end: 20050420
  2. RISUMIC [Concomitant]
     Dosage: TAKEN DURING DIALYSIS.
     Route: 048
     Dates: start: 20050414, end: 20050421
  3. ROCALTROL [Concomitant]
     Dosage: TAKEN DURING DIALYSIS.
     Route: 048
     Dates: start: 20050414, end: 20050421
  4. OMEPRAL [Concomitant]
     Route: 048
     Dates: start: 20050414, end: 20050420
  5. CALCICOL [Concomitant]
     Route: 048
     Dates: start: 20050414, end: 20050420

REACTIONS (6)
  - ANAPHYLACTIC REACTION [None]
  - CARDIAC FAILURE [None]
  - INSOMNIA [None]
  - METABOLIC ACIDOSIS [None]
  - MULTI-ORGAN FAILURE [None]
  - RENAL FAILURE CHRONIC [None]
